FAERS Safety Report 17874639 (Version 1)
Quarter: 2020Q2

REPORT INFORMATION
  Report Type: Report from Study
  Country: US (occurrence: US)
  Receive Date: 20200609
  Receipt Date: 20200609
  Transmission Date: 20200714
  Serious: Yes (Hospitalization)
  Sender: FDA-Public Use
  Company Number: US-BAUSCH-BL-2020-016452

PATIENT
  Age: 63 Year
  Sex: Male

DRUGS (2)
  1. XIFAXAN [Suspect]
     Active Substance: RIFAXIMIN
     Indication: PRODUCT USED FOR UNKNOWN INDICATION
     Dosage: MISSED DOSES
     Route: 065
  2. XIFAXAN [Suspect]
     Active Substance: RIFAXIMIN
     Dosage: RESTARTED AT TIMES OF HOSPITALISATION, TWICE
     Route: 065

REACTIONS (3)
  - Hospitalisation [Recovered/Resolved]
  - Therapy interrupted [Unknown]
  - Inability to afford medication [Unknown]
